FAERS Safety Report 11775107 (Version 1)
Quarter: 2015Q4

REPORT INFORMATION
  Report Type: Spontaneous
  Country: US (occurrence: US)
  Receive Date: 20151124
  Receipt Date: 20151124
  Transmission Date: 20160304
  Serious: No
  Sender: FDA-Public Use
  Company Number: US-TAKEDA-2015TUS016681

PATIENT
  Age: 61 Year
  Sex: Male

DRUGS (2)
  1. METHOTREXATE [Concomitant]
     Active Substance: METHOTREXATE
     Dosage: 12.5 MG, 1/WEEK
     Route: 048
     Dates: start: 201407
  2. ENTYVIO [Suspect]
     Active Substance: VEDOLIZUMAB
     Indication: CROHN^S DISEASE
     Dosage: 300 MG, UNK
     Route: 065
     Dates: start: 20150115

REACTIONS (4)
  - Inappropriate schedule of drug administration [Unknown]
  - Fatigue [Recovered/Resolved]
  - Product solubility abnormal [Unknown]
  - Malaise [Recovered/Resolved]

NARRATIVE: CASE EVENT DATE: 201508
